FAERS Safety Report 9333786 (Version 2)
Quarter: 2014Q1

REPORT INFORMATION
  Report Type: Spontaneous
  Country: US (occurrence: US)
  Receive Date: 20130606
  Receipt Date: 20140307
  Transmission Date: 20141002
  Serious: Yes (Other)
  Sender: FDA-Public Use
  Company Number: US-AMGEN-USASP2013003760

PATIENT
  Age: 73 Year
  Sex: Female
  Weight: 60.32 kg

DRUGS (7)
  1. PROLIA [Suspect]
     Indication: OSTEOPOROSIS POSTMENOPAUSAL
     Dosage: 60 MG, Q6MO
     Route: 058
     Dates: start: 20130114, end: 20130114
  2. PRILOSEC                           /00661201/ [Concomitant]
     Indication: GASTROOESOPHAGEAL REFLUX DISEASE
     Dosage: 20 MG, QD
     Route: 048
  3. BROVANA [Concomitant]
     Dosage: 30 MUG, QD
     Route: 048
  4. ALBUTEROL HFA [Concomitant]
     Indication: ASTHMA
     Dosage: 2 PUFFS, QD
  5. MIDODRINE [Concomitant]
     Dosage: 5 MG, QD
     Route: 048
  6. URSODIOL [Concomitant]
     Dosage: 300 MG, TID
     Route: 048
  7. DEPOT TESTODIOL [Concomitant]
     Indication: HORMONE REPLACEMENT THERAPY
     Dosage: 50 MG TEST, 8 MG EST, QMO
     Route: 030

REACTIONS (5)
  - Spinal compression fracture [Recovered/Resolved]
  - Pelvic pain [Recovered/Resolved]
  - Groin pain [Recovered/Resolved]
  - Arthralgia [Recovered/Resolved]
  - Drug hypersensitivity [Unknown]
